FAERS Safety Report 9162232 (Version 2)
Quarter: 2013Q2

REPORT INFORMATION
  Report Type: Spontaneous
  Country: CN (occurrence: None)
  Receive Date: 20130215
  Receipt Date: 20130415
  Transmission Date: 20140414
  Serious: Yes (Hospitalization)
  Sender: FDA-Public Use
  Company Number: SYM-2013-00475

PATIENT
  Age: 67 Year
  Sex: Female

DRUGS (10)
  1. 5-FU [Suspect]
     Indication: ADENOCARCINOMA OF COLON
     Route: 041
     Dates: start: 20121212, end: 20121212
  2. IRINOTECAN [Suspect]
     Indication: ADENOCARCINOMA OF COLON
     Route: 041
     Dates: start: 20121212, end: 20121212
  3. LEUCOVORIN [Suspect]
     Indication: ADENOCARCINOMA OF COLON
     Route: 041
     Dates: start: 20121212, end: 20121212
  4. BLINDED THERAPY(OTHER THERAPEUTIC PRODUCTS)(SOLUTION FOR INFUSION)(NULL) [Suspect]
     Indication: ADENOCARCINOMA OF COLON
     Route: 041
     Dates: start: 20121212, end: 20121212
  5. PALONOSETRON HYDROCHLORIDE(PALONOSETRON HYDROCHLORIDE)(UNKNOWN)(PALONOSETRON HYDROCHLORIDE) [Concomitant]
  6. DEXAMETHASONE(DEXAMETHASONE)(UNKNOWN)(DEXAMETHASONE) [Concomitant]
  7. LOPERAMIDE(LOPERAMIDE)(UNKNOWN)(LOPERAMIDE) [Concomitant]
  8. G-CSF(GRANULOCYTE COLONY STIMULATING FACTOR)(UNKNOWN)(GRANULOCYTE COLONY STIMULATING FACTOR) [Concomitant]
  9. XELODA(CAPECITABINE)(UNKNOWN)(CAPECITABINE) [Concomitant]
  10. OXALIPLATIN(OXALIPLATIN)(UNKNOWN)(OXALIPLATIN) [Concomitant]

REACTIONS (5)
  - Haematuria [None]
  - Toxicity to various agents [None]
  - Blood pressure increased [None]
  - Asthenia [None]
  - Urine protein/creatinine ratio increased [None]
